FAERS Safety Report 18203830 (Version 1)
Quarter: 2020Q3

REPORT INFORMATION
  Report Type: Other
  Country: JP (occurrence: JP)
  Receive Date: 20200827
  Receipt Date: 20200827
  Transmission Date: 20201103
  Serious: Yes (Life-Threatening, Other)
  Sender: FDA-Public Use
  Company Number: JP-VALIDUS PHARMACEUTICALS LLC-JP-2020VAL000699

PATIENT

DRUGS (26)
  1. HEPAFLUSH [Concomitant]
     Active Substance: HEPARIN SODIUM
     Indication: PRODUCT USED FOR UNKNOWN INDICATION
     Dosage: UNK
     Dates: start: 20160525, end: 20160618
  2. PN?TWIN NO. 2 [Concomitant]
     Indication: PRODUCT USED FOR UNKNOWN INDICATION
     Dosage: UNK
     Dates: start: 20160607, end: 20160607
  3. HEPARIN [Concomitant]
     Active Substance: HEPARIN SODIUM
     Indication: PRODUCT USED FOR UNKNOWN INDICATION
     Dosage: UNK
     Dates: start: 20160526, end: 20160606
  4. OTSUKA MV [Concomitant]
     Indication: PRODUCT USED FOR UNKNOWN INDICATION
     Dosage: UNK
     Dates: start: 20160606, end: 20160609
  5. LORAZEPAM. [Concomitant]
     Active Substance: LORAZEPAM
     Indication: PRODUCT USED FOR UNKNOWN INDICATION
     Dosage: UNK
  6. CLOBAZAM. [Suspect]
     Active Substance: CLOBAZAM
     Indication: SEIZURE PROPHYLAXIS
     Dosage: 4 G, BID
     Route: 065
     Dates: start: 20160602, end: 20160603
  7. VENOGLOBULIN [Concomitant]
     Active Substance: HUMAN IMMUNOGLOBULIN G
     Indication: PRODUCT USED FOR UNKNOWN INDICATION
     Dosage: UNK
     Dates: start: 20160531, end: 20160612
  8. INTRALIPOS [Concomitant]
     Active Substance: SOYBEAN OIL
     Indication: PRODUCT USED FOR UNKNOWN INDICATION
     Dosage: UNK
     Dates: start: 20160606, end: 20160607
  9. SOYBEAN OIL EMULS [Concomitant]
     Indication: PRODUCT USED FOR UNKNOWN INDICATION
     Dosage: UNK
  10. CARBAMAZEPINE. [Suspect]
     Active Substance: CARBAMAZEPINE
     Dosage: 200 MG, BID
     Route: 065
  11. METHYLPREDNISOLONE. [Concomitant]
     Active Substance: METHYLPREDNISOLONE
     Indication: PRODUCT USED FOR UNKNOWN INDICATION
     Dosage: UNK
     Dates: start: 20160526, end: 20160620
  12. PN TWIN [Concomitant]
     Indication: PRODUCT USED FOR UNKNOWN INDICATION
     Dosage: UNK
     Dates: start: 20160506, end: 20160607
  13. SOLACET F [Concomitant]
     Active Substance: CALCIUM CHLORIDE\POTASSIUM CHLORIDE\SODIUM ACETATE\SODIUM CHLORIDE
     Indication: PRODUCT USED FOR UNKNOWN INDICATION
     Dosage: UNK
     Dates: start: 20160525, end: 20160607
  14. VOLIX [Concomitant]
     Indication: PRODUCT USED FOR UNKNOWN INDICATION
     Dosage: UNK
     Dates: start: 20160606, end: 20160609
  15. VEEN D [Concomitant]
     Active Substance: CALCIUM CHLORIDE\DEXTROSE\POTASSIUM CHLORIDE\SODIUM ACETATE\SODIUM CHLORIDE
     Indication: PRODUCT USED FOR UNKNOWN INDICATION
     Dosage: UNK
     Dates: start: 20160525, end: 20160611
  16. TRICLORYL [Concomitant]
     Active Substance: TRICLOFOS SODIUM
     Indication: PRODUCT USED FOR UNKNOWN INDICATION
     Dosage: UNK
     Dates: start: 20160527, end: 20160604
  17. ROZEREM [Concomitant]
     Active Substance: RAMELTEON
     Indication: PRODUCT USED FOR UNKNOWN INDICATION
     Dosage: UNK
     Dates: start: 20160529, end: 20160614
  18. FOSTOIN [Concomitant]
     Active Substance: FOSPHENYTOIN SODIUM
     Indication: PRODUCT USED FOR UNKNOWN INDICATION
     Dosage: UNK
     Dates: start: 20160602, end: 20160606
  19. CARBAMAZEPINE. [Suspect]
     Active Substance: CARBAMAZEPINE
     Indication: SEIZURE PROPHYLAXIS
     Dosage: 140 MG, BID
     Route: 065
     Dates: start: 20160601, end: 20160603
  20. CARBAMAZEPINE. [Suspect]
     Active Substance: CARBAMAZEPINE
     Indication: PRODUCT USED FOR UNKNOWN INDICATION
     Dosage: UNK
     Route: 065
  21. OMEPRAZOLE. [Concomitant]
     Active Substance: OMEPRAZOLE
     Indication: PRODUCT USED FOR UNKNOWN INDICATION
     Dosage: UNK
     Dates: start: 20160526, end: 20160611
  22. CLOBAZAM. [Suspect]
     Active Substance: CLOBAZAM
     Dosage: 5 G, BID
     Route: 065
     Dates: start: 20160604, end: 20160621
  23. WYPAX [Concomitant]
     Active Substance: LORAZEPAM
     Indication: PRODUCT USED FOR UNKNOWN INDICATION
     Dosage: UNK
     Dates: start: 20160526, end: 20160614
  24. IMMUNOGLOBULIN I.V [Concomitant]
     Active Substance: HUMAN IMMUNOGLOBULIN G
     Indication: PRODUCT USED FOR UNKNOWN INDICATION
     Dosage: UNK
  25. CEFOTAXIME SODIUM [Suspect]
     Active Substance: CEFOTAXIME SODIUM
     Indication: INFECTION
     Dosage: 2 G, QID
     Route: 042
     Dates: start: 20160610, end: 20160617
  26. FOSPHENYTOIN [Concomitant]
     Active Substance: FOSPHENYTOIN
     Indication: PRODUCT USED FOR UNKNOWN INDICATION
     Dosage: UNK
     Dates: start: 20160601, end: 20160607

REACTIONS (25)
  - Papule [Unknown]
  - Aggression [Unknown]
  - Drug reaction with eosinophilia and systemic symptoms [Unknown]
  - Escherichia test positive [Unknown]
  - Pyrexia [Unknown]
  - Dry skin [Unknown]
  - Urinary tract infection [Unknown]
  - Pruritus [Unknown]
  - Constipation [Unknown]
  - Hypertension [Unknown]
  - Staphylococcal infection [Unknown]
  - Pyuria [Unknown]
  - Limbic encephalitis [Unknown]
  - Limb discomfort [Unknown]
  - Stevens-Johnson syndrome [Recovered/Resolved]
  - Focal dyscognitive seizures [Unknown]
  - Screaming [Unknown]
  - Bacterial infection [Unknown]
  - Apnoea [Unknown]
  - Device related infection [Unknown]
  - Endocarditis [Unknown]
  - Condition aggravated [Unknown]
  - Blister [Unknown]
  - Disturbance in attention [Unknown]
  - Proteus test positive [Unknown]

NARRATIVE: CASE EVENT DATE: 20160602
